FAERS Safety Report 9287852 (Version 1)
Quarter: 2013Q2

REPORT INFORMATION
  Report Type: Report from Study
  Country: CA (occurrence: CA)
  Receive Date: 20130514
  Receipt Date: 20130514
  Transmission Date: 20140414
  Serious: Yes (Other)
  Sender: FDA-Public Use
  Company Number: CA-JNJFOC-20130506207

PATIENT
  Age: 34 Year
  Sex: Male
  Weight: 95.5 kg

DRUGS (2)
  1. REMICADE [Suspect]
     Indication: ANKYLOSING SPONDYLITIS
     Route: 042
     Dates: start: 200907
  2. DILANTIN [Suspect]
     Indication: CONVULSION
     Route: 065

REACTIONS (2)
  - Dizziness [Recovered/Resolved]
  - Drug level decreased [Unknown]
